FAERS Safety Report 22101132 (Version 1)
Quarter: 2023Q1

REPORT INFORMATION
  Report Type: Spontaneous
  Country: US (occurrence: US)
  Receive Date: 20230316
  Receipt Date: 20230316
  Transmission Date: 20230417
  Serious: No
  Sender: FDA-Public Use
  Company Number: US-JNJFOC-20230311433

PATIENT
  Sex: Female

DRUGS (15)
  1. SIMPONI [Suspect]
     Active Substance: GOLIMUMAB
     Indication: Product used for unknown indication
     Route: 058
  2. DUPIXENT [Suspect]
     Active Substance: DUPILUMAB
     Indication: Dermatitis allergic
     Dosage: 300MG/2ML
     Route: 058
  3. SODIUM CHLORIDE [Concomitant]
     Active Substance: SODIUM CHLORIDE
  4. HUMIRA [Concomitant]
     Active Substance: ADALIMUMAB
  5. BIOTIN [Concomitant]
     Active Substance: BIOTIN
  6. MELATONIN [Concomitant]
     Active Substance: MELATONIN
  7. NALTREXONE [Concomitant]
     Active Substance: NALTREXONE
  8. VITAMIN C [Concomitant]
     Active Substance: ASCORBIC ACID
  9. VITAMIN D3 [Concomitant]
     Active Substance: CHOLECALCIFEROL
  10. HYDROCHLOROTHIAZIDE [Concomitant]
     Active Substance: HYDROCHLOROTHIAZIDE
  11. LAGEVRIO [Concomitant]
     Active Substance: MOLNUPIRAVIR
  12. IRBESARTAN [Concomitant]
     Active Substance: IRBESARTAN
  13. OMEPRAZOLE [Concomitant]
     Active Substance: OMEPRAZOLE
  14. METRONIDAZOLE [Concomitant]
     Active Substance: METRONIDAZOLE
  15. CIPROFLOXACIN [Concomitant]
     Active Substance: CIPROFLOXACIN

REACTIONS (1)
  - Musculoskeletal discomfort [Not Recovered/Not Resolved]
